FAERS Safety Report 4578131-5 (Version None)
Quarter: 2005Q1

REPORT INFORMATION
  Report Type: 
  Country: None (occurrence: None)
  Receive Date: 20050209
  Receipt Date: 20050124
  Transmission Date: 20050727
  Serious: Yes (Life-Threatening, Hospitalization)
  Sender: FDA-Public Use
  Company Number: US_0410107513

PATIENT
  Age: 60 Year
  Sex: Male

DRUGS (3)
  1. CYMBALTA [Suspect]
     Dosage: 60 MG/1 DAY
  2. METFORMIN HCL [Concomitant]
  3. GLIBENCLAMIDE [Concomitant]

REACTIONS (18)
  - ANOREXIA [None]
  - ANURIA [None]
  - BLOOD GLUCOSE INCREASED [None]
  - BULIMIA NERVOSA [None]
  - CONFUSIONAL STATE [None]
  - GAIT DISTURBANCE [None]
  - HAEMOGLOBIN URINE PRESENT [None]
  - HICCUPS [None]
  - HYPERTENSION [None]
  - HYPOGLYCAEMIA [None]
  - NAUSEA [None]
  - NEPHRITIS INTERSTITIAL [None]
  - POLYURIA [None]
  - RED BLOOD CELLS URINE [None]
  - REFUSAL OF TREATMENT BY PATIENT [None]
  - RENAL FAILURE ACUTE [None]
  - RENAL HYPERTROPHY [None]
  - WHITE BLOOD CELLS URINE POSITIVE [None]
